FAERS Safety Report 5105039-9 (Version None)
Quarter: 2006Q3

REPORT INFORMATION
  Report Type: 
  Country: None (occurrence: None)
  Receive Date: 20060914
  Receipt Date: 20060906
  Transmission Date: 20061208
  Serious: Yes (Other)
  Sender: FDA-Public Use
  Company Number: TH-BOEHRINGER INGELHEIM PHARMACEUTICALS, INC.-2006-DE-04735GD

PATIENT

DRUGS (2)
  1. TRIOMUNE [Suspect]
     Indication: HIV INFECTION
     Dosage: GPO-VIR 60 MG OR 80 MG
  2. TRIOMUNE [Suspect]
     Indication: ACQUIRED IMMUNODEFICIENCY SYNDROME

REACTIONS (6)
  - ABSCESS [None]
  - CEREBRAL HAEMATOMA [None]
  - CEREBRAL TOXOPLASMOSIS [None]
  - CONFUSIONAL STATE [None]
  - HEMIPARESIS [None]
  - IMMUNE RECONSTITUTION SYNDROME [None]
